FAERS Safety Report 24792324 (Version 1)
Quarter: 2024Q4

REPORT INFORMATION
  Report Type: Spontaneous
  Country: US (occurrence: US)
  Receive Date: 20241231
  Receipt Date: 20241231
  Transmission Date: 20250114
  Serious: Yes (Hospitalization, Other)
  Sender: SANOFI AVENTIS
  Company Number: US-SA-2024SA384131

PATIENT
  Sex: Female
  Weight: 109.09 kg

DRUGS (1)
  1. DUPIXENT [Suspect]
     Active Substance: DUPILUMAB
     Indication: Asthma
     Dosage: 300 MG, QOW
     Route: 058
     Dates: start: 20241120, end: 20241224

REACTIONS (6)
  - Retinal detachment [Unknown]
  - Retinal tear [Unknown]
  - Blindness [Unknown]
  - Vitreous floaters [Unknown]
  - Vision blurred [Unknown]
  - Condition aggravated [Unknown]
